FAERS Safety Report 18038904 (Version 1)
Quarter: 2020Q3

REPORT INFORMATION
  Report Type: Spontaneous
  Country: CN (occurrence: CN)
  Receive Date: 20200717
  Receipt Date: 20200717
  Transmission Date: 20201103
  Serious: Yes (Other)
  Sender: FDA-Public Use
  Company Number: CN-BAYER-2020-144797

PATIENT
  Age: 62 Year
  Sex: Male

DRUGS (1)
  1. STIVARGA [Suspect]
     Active Substance: REGORAFENIB
     Indication: RECTAL CANCER
     Dosage: 160 MG, QD
     Route: 048
     Dates: start: 201901, end: 201908

REACTIONS (2)
  - Rectal cancer [None]
  - Palmar-plantar erythrodysaesthesia syndrome [Recovered/Resolved]

NARRATIVE: CASE EVENT DATE: 201901
